FAERS Safety Report 4334738-1 (Version None)
Quarter: 2004Q2

REPORT INFORMATION
  Report Type: 
  Country: None (occurrence: None)
  Receive Date: 20040407
  Receipt Date: 20040407
  Transmission Date: 20050107
  Serious: Yes (Other)
  Sender: FDA-Public Use
  Company Number: None

PATIENT
  Sex: Male
  Weight: 83.2 kg

DRUGS (6)
  1. DOCETAXEL [Suspect]
     Indication: PANCREATIC CARCINOMA
     Dosage: 20 MG/M2 WEEKLY IV
     Route: 042
     Dates: start: 20030613, end: 20030829
  2. OSI-774 [Suspect]
     Indication: PANCREATIC CARCINOMA
     Dosage: 150 MG PER DAY PO
     Route: 048
     Dates: start: 20030613, end: 20030829
  3. MS CONTIN [Concomitant]
  4. MS CONTIN [Concomitant]
  5. PRILOSEC [Concomitant]
  6. IMODIUM [Concomitant]

REACTIONS (2)
  - DRUG TOXICITY [None]
  - PNEUMONITIS [None]
